FAERS Safety Report 18575536 (Version 1)
Quarter: 2020Q4

REPORT INFORMATION
  Report Type: Spontaneous
  Country: US (occurrence: US)
  Receive Date: 20201203
  Receipt Date: 20201203
  Transmission Date: 20210114
  Serious: No
  Sender: FDA-Public Use
  Company Number: NVSC2020US319786

PATIENT
  Age: 74 Year
  Sex: Male

DRUGS (1)
  1. ENTRESTO [Suspect]
     Active Substance: SACUBITRIL\VALSARTAN
     Indication: CARDIAC FAILURE
     Dosage: 80 MG, BID
     Route: 048
     Dates: start: 20190809, end: 20201010

REACTIONS (2)
  - Cough [Not Recovered/Not Resolved]
  - Incorrect dose administered [Unknown]
